FAERS Safety Report 9643432 (Version 2)
Quarter: 2014Q1

REPORT INFORMATION
  Report Type: Spontaneous
  Country: BR (occurrence: BR)
  Receive Date: 20131024
  Receipt Date: 20140127
  Transmission Date: 20141002
  Serious: Yes (Hospitalization, Other)
  Sender: FDA-Public Use
  Company Number: BR-B.I. PHARMACEUTICALS,INC./RIDGEFIELD-2013-BI-33266BR

PATIENT
  Sex: Male

DRUGS (5)
  1. PRADAXA [Suspect]
     Indication: CEREBROVASCULAR ACCIDENT PROPHYLAXIS
     Dosage: 300 MG
     Route: 048
     Dates: end: 201310
  2. PRADAXA [Suspect]
     Indication: ATRIAL FIBRILLATION
  3. ANTIARRHYTHMIC [Concomitant]
     Indication: ARRHYTHMIA
  4. MEDICATION TO HYPERTENSION [Concomitant]
     Indication: HYPERTENSION
  5. MEDICATION TO DIABETES [Concomitant]
     Indication: DIABETES MELLITUS

REACTIONS (3)
  - Ischaemic stroke [Recovered/Resolved]
  - Hemiplegia [Not Recovered/Not Resolved]
  - Aphasia [Not Recovered/Not Resolved]
